FAERS Safety Report 24793125 (Version 2)
Quarter: 2025Q2

REPORT INFORMATION
  Report Type: Spontaneous
  Country: ES (occurrence: ES)
  Receive Date: 20241231
  Receipt Date: 20250618
  Transmission Date: 20250716
  Serious: Yes (Other)
  Sender: ABBVIE
  Company Number: None

PATIENT
  Age: 41 Year
  Sex: Male

DRUGS (39)
  1. BOTOX [Suspect]
     Active Substance: ONABOTULINUMTOXINA
     Indication: Migraine
     Route: 065
     Dates: start: 201110, end: 201110
  2. BOTOX [Suspect]
     Active Substance: ONABOTULINUMTOXINA
     Indication: Migraine
     Route: 065
  3. BOTOX [Suspect]
     Active Substance: ONABOTULINUMTOXINA
     Indication: Migraine
     Route: 065
     Dates: start: 20130307, end: 20130307
  4. BOTOX [Suspect]
     Active Substance: ONABOTULINUMTOXINA
     Indication: Migraine
     Route: 065
  5. CAFFEINE [Suspect]
     Active Substance: CAFFEINE
     Indication: Migraine
     Route: 065
  6. AMITRIPTYLINE HYDROCHLORIDE [Suspect]
     Active Substance: AMITRIPTYLINE HYDROCHLORIDE
     Indication: Migraine
     Dosage: DAILY DOSE: 1.0 DF; DECHALLENGE: N/A; RECHALLENGE: N/A
     Route: 065
  7. AMITRIPTYLINE HYDROCHLORIDE [Suspect]
     Active Substance: AMITRIPTYLINE HYDROCHLORIDE
     Indication: Migraine
     Dosage: DAILY DOSE: 10.0 MG
     Route: 065
     Dates: start: 201211
  8. ZOMIG [Suspect]
     Active Substance: ZOLMITRIPTAN
     Indication: Migraine
     Route: 065
  9. RELPAX [Suspect]
     Active Substance: ELETRIPTAN HYDROBROMIDE
     Indication: Migraine
     Route: 065
  10. ERGOTAMINE [Suspect]
     Active Substance: CAFFEINE\ERGOTAMINE\ERGOTAMINE TARTRATE
     Indication: Migraine
     Route: 065
  11. DICLOFENAC SODIUM [Suspect]
     Active Substance: DICLOFENAC SODIUM
     Indication: Migraine
     Route: 065
  12. VALPROIC ACID [Suspect]
     Active Substance: VALPROIC ACID
     Indication: Migraine
     Dosage: DAILY DOSE: 500.0 MG
     Route: 065
     Dates: start: 201211
  13. ACETAMINOPHEN [Suspect]
     Active Substance: ACETAMINOPHEN
     Indication: Migraine
     Route: 065
  14. METAMIZOLE SODIUM [Suspect]
     Active Substance: METAMIZOLE SODIUM
     Indication: Migraine
     Route: 065
  15. BROMAZEPAM [Suspect]
     Active Substance: BROMAZEPAM
     Indication: Migraine
     Dosage: DAILY DOSE: 3.0 MG; DECHALLENGE: N/A; RECHALLENGE: N/A
     Route: 065
  16. METAMIZOLE MAGNESIUM [Suspect]
     Active Substance: METAMIZOLE MAGNESIUM
     Indication: Migraine
     Route: 065
  17. IBUPROFEN [Suspect]
     Active Substance: IBUPROFEN
     Indication: Migraine
     Route: 065
  18. MAXALT [Suspect]
     Active Substance: RIZATRIPTAN BENZOATE
     Indication: Migraine
     Route: 065
  19. PAROXETINE [Suspect]
     Active Substance: PAROXETINE
     Indication: Migraine
     Route: 065
  20. FLUNARIZINE HYDROCHLORIDE [Suspect]
     Active Substance: FLUNARIZINE HYDROCHLORIDE
     Indication: Migraine
     Dosage: DAILY DOSE: 5.0 MG; DECHALLENGE: N/A; RECHALLENGE: N/A
     Route: 065
  21. LAMOTRIGINE [Suspect]
     Active Substance: LAMOTRIGINE
     Indication: Migraine
     Dosage: DAILY DOSE: 50.0 MG; DECHALLENGE: N/A; RECHALLENGE: N/A
     Route: 065
     Dates: start: 201110
  22. VALPROATE SODIUM [Suspect]
     Active Substance: VALPROATE SODIUM
     Indication: Migraine
     Route: 065
  23. TOPIRAMATE [Suspect]
     Active Substance: TOPIRAMATE
     Indication: Migraine
     Dosage: DAILY DOSE: 25.0 MG; DECHALLENGE: N/A; RECHALLENGE: N/A
     Route: 065
     Dates: start: 200906
  24. TOPIRAMATE [Suspect]
     Active Substance: TOPIRAMATE
     Indication: Migraine
     Route: 065
  25. ACETAMINOPHEN\BELLADONNA LEAF\CAFFEINE\ERGOTAMINE TARTRATE [Suspect]
     Active Substance: ACETAMINOPHEN\BELLADONNA LEAF\CAFFEINE\ERGOTAMINE TARTRATE
     Indication: Migraine
     Route: 065
  26. XEOMIN [Suspect]
     Active Substance: INCOBOTULINUMTOXINA
     Indication: Migraine
     Route: 065
     Dates: start: 200902, end: 200902
  27. XEOMIN [Suspect]
     Active Substance: INCOBOTULINUMTOXINA
     Indication: Migraine
     Route: 065
     Dates: start: 20130307, end: 20130307
  28. PAROXETINE HYDROCHLORIDE [Suspect]
     Active Substance: PAROXETINE HYDROCHLORIDE
     Indication: Migraine
     Route: 065
  29. PREDNISONE [Suspect]
     Active Substance: PREDNISONE
     Indication: Migraine
     Dosage: DAILY DOSE: 60.0 MG ; DECHALLENGE: N/A; RECHALLENGE: N/A
     Route: 065
  30. HOMEOPATHICS [Suspect]
     Active Substance: HOMEOPATHICS
     Indication: Migraine
     Route: 065
  31. AMITRIPTYLINE HYDROCHLORIDE [Suspect]
     Active Substance: AMITRIPTYLINE HYDROCHLORIDE
     Indication: Migraine
     Dosage: DAILY DOSE: 10.0 MG; DECHALLENGE: N/A; RECHALLENGE: N/A
     Route: 065
     Dates: start: 201211
  32. AMITRIPTYLINE HYDROCHLORIDE [Suspect]
     Active Substance: AMITRIPTYLINE HYDROCHLORIDE
     Indication: Migraine
     Dosage: DAILY DOSE: 1.0 DF; DECHALLENGE: N/A; RECHALLENGE: N/A
     Route: 065
  33. AMITRIPTYLINE HYDROCHLORIDE [Suspect]
     Active Substance: AMITRIPTYLINE HYDROCHLORIDE
     Indication: Migraine
     Dosage: DAILY DOSE: 10.0 MG; DECHALLENGE: N/A; RECHALLENGE: N/A
     Route: 065
     Dates: start: 201110
  34. TOPAMAX [Suspect]
     Active Substance: TOPIRAMATE
     Indication: Migraine
     Route: 065
  35. METAMIZOLE\PROPOXYPHENE [Suspect]
     Active Substance: METAMIZOLE\PROPOXYPHENE
     Indication: Migraine
     Route: 065
  36. BROMAZEPAM [Suspect]
     Active Substance: BROMAZEPAM
     Indication: Migraine
  37. BROMAZEPAM [Suspect]
     Active Substance: BROMAZEPAM
     Indication: Migraine
     Dosage: DAILY DOSE: 3.0 MG
  38. METAMIZOLE SODIUM [Suspect]
     Active Substance: METAMIZOLE SODIUM
     Indication: Migraine
     Route: 065
  39. FLUNARIZINE HYDROCHLORIDE [Suspect]
     Active Substance: FLUNARIZINE HYDROCHLORIDE
     Indication: Migraine
     Route: 065

REACTIONS (7)
  - Insomnia [Unknown]
  - Off label use [Unknown]
  - Paraesthesia [Unknown]
  - Intentional product misuse [Unknown]
  - Therapy partial responder [Unknown]
  - Drug abuse [Unknown]
  - Product use in unapproved indication [Unknown]

NARRATIVE: CASE EVENT DATE: 20090201
